FAERS Safety Report 5021875-1 (Version None)
Quarter: 2006Q2

REPORT INFORMATION
  Report Type: 
  Country: None (occurrence: None)
  Receive Date: 20060609
  Receipt Date: 20060601
  Transmission Date: 20061013
  Serious: Yes (Other)
  Sender: FDA-Public Use
  Company Number: 2006UW10580

PATIENT
  Age: 57 Year
  Sex: Female
  Weight: 62.6 kg

DRUGS (2)
  1. ARIMIDEX [Suspect]
     Indication: BREAST CANCER STAGE I
     Route: 048
  2. ELAVIL [Concomitant]
     Indication: TRIGEMINAL NEURALGIA

REACTIONS (6)
  - ARTHRALGIA [None]
  - CONDITION AGGRAVATED [None]
  - HEADACHE [None]
  - PAIN [None]
  - RETINAL DETACHMENT [None]
  - TRIGEMINAL NEURALGIA [None]
